FAERS Safety Report 19674421 (Version 3)
Quarter: 2021Q3

REPORT INFORMATION
  Report Type: Report from Study
  Country: DE (occurrence: DE)
  Receive Date: 20210809
  Receipt Date: 20210817
  Transmission Date: 20211014
  Serious: Yes (Other)
  Sender: FDA-Public Use
  Company Number: DE-CELLTRION INC.-2021DE010626

PATIENT

DRUGS (8)
  1. COPANLISIB. [Suspect]
     Active Substance: COPANLISIB
     Dosage: 60 MG, DAILY (CYCLE 2)
     Route: 042
     Dates: start: 20210223
  2. COPANLISIB. [Suspect]
     Active Substance: COPANLISIB
     Dosage: 60 MG, DAILY (CYCLE 3)
     Route: 042
     Dates: start: 20210325
  3. TRUXIMA [Suspect]
     Active Substance: RITUXIMAB-ABBS
     Dosage: 375 MG/QM, EVERY 4 WEEKS (CYCLE 2)
     Route: 042
     Dates: start: 20210209
  4. TRUXIMA [Suspect]
     Active Substance: RITUXIMAB-ABBS
     Dosage: 375 MG/QM, EVERY 4 WEEKS (CYCLE 4)
     Route: 042
     Dates: start: 20210406, end: 20210601
  5. COPANLISIB. [Suspect]
     Active Substance: COPANLISIB
     Indication: MARGINAL ZONE LYMPHOMA
     Dosage: 60 MG, DAILY
     Route: 042
     Dates: start: 20210112
  6. TRUXIMA [Suspect]
     Active Substance: RITUXIMAB-ABBS
     Indication: MARGINAL ZONE LYMPHOMA
     Dosage: 375 MG/QM, EVERY 4 WEEKS
     Route: 042
     Dates: start: 20210112
  7. TRUXIMA [Suspect]
     Active Substance: RITUXIMAB-ABBS
     Dosage: 375 MG/QM, EVERY 4 WEEKS (CYCLE 3)
     Route: 042
     Dates: start: 20210309
  8. COPANLISIB. [Suspect]
     Active Substance: COPANLISIB
     Dosage: 60 MG, DAILY (CYCLE 4)
     Route: 042
     Dates: start: 20210406, end: 20210615

REACTIONS (2)
  - Off label use [Unknown]
  - Hypertension [Recovered/Resolved]

NARRATIVE: CASE EVENT DATE: 20210223
